FAERS Safety Report 26001811 (Version 1)
Quarter: 2025Q4

REPORT INFORMATION
  Report Type: Spontaneous
  Country: EU (occurrence: EU)
  Receive Date: 20251105
  Receipt Date: 20251105
  Transmission Date: 20260117
  Serious: Yes (Hospitalization, Other)
  Sender: PFIZER
  Company Number: EU-ROCHE-10000124848

PATIENT
  Age: 51 Year
  Sex: Female
  Weight: 66 kg

DRUGS (17)
  1. CARBOPLATIN [Suspect]
     Active Substance: CARBOPLATIN
     Indication: Triple negative breast cancer
     Dosage: UNK, EVERY 3 WEEKS (AUC 5, ON 31DEC2024, RECEIVED THE LAST DOSE OF CARBOPLATIN (570 MG)
     Route: 042
     Dates: start: 20241015
  2. ATEZOLIZUMAB [Suspect]
     Active Substance: ATEZOLIZUMAB
     Indication: Triple negative breast cancer
     Dosage: 1200 MG, EVERY 3 WEEKS (ON 31DEC2024, SHE RECEIVED THE LAST DOSE OF ATEZOLIZUMAB (1200 MG)ON 04MAR20
     Route: 042
     Dates: start: 20241015
  3. TIRAGOLUMAB [Suspect]
     Active Substance: TIRAGOLUMAB
     Indication: Triple negative breast cancer
     Dosage: 600 MG, EVERY 3 WEEKS (ON 31DEC2024, SHE RECEIVED THE LAST DOSE OF TIRAGOLUMAB(600 MG)ON 04MAR2025,
     Route: 042
     Dates: start: 20241015
  4. PACLITAXEL [Suspect]
     Active Substance: PACLITAXEL
     Indication: Triple negative breast cancer
     Dosage: 100 MG/M2, EVERY 3 WEEKS (ON DAYS 1, 8, AND 15,ON 14JAN2025, SHE RECEIVED THE LAST DOSE OF NAB PACLI
     Route: 042
     Dates: start: 20141015
  5. AKYNZEO (NETUPITANT\PALONOSETRON HYDROCHLORIDE) [Concomitant]
     Active Substance: NETUPITANT\PALONOSETRON HYDROCHLORIDE
     Dosage: UNK
     Route: 048
     Dates: start: 20241015
  6. PREDNISONE [Concomitant]
     Active Substance: PREDNISONE
     Dosage: UNK
     Route: 048
     Dates: start: 20241015
  7. BILASTINE [Concomitant]
     Active Substance: BILASTINE
     Dosage: 20 MG, 1X/DAY (IN THE EVENING)
     Route: 048
  8. BILASTINE [Concomitant]
     Active Substance: BILASTINE
     Dosage: 20 MG, 1X/DAY
     Dates: start: 20250130, end: 20250301
  9. INNOHEP [Concomitant]
     Active Substance: TINZAPARIN SODIUM
     Dosage: 1200 MG
     Route: 042
     Dates: start: 20250121, end: 20250220
  10. INNOHEP [Concomitant]
     Active Substance: TINZAPARIN SODIUM
     Dosage: 14000 IU
     Dates: start: 20250130, end: 20250220
  11. INNOHEP [Concomitant]
     Active Substance: TINZAPARIN SODIUM
     Dosage: 12000 IU, DAILY (12000 IU/D SC)
     Route: 058
  12. LANSOPRAZOLE [Concomitant]
     Active Substance: LANSOPRAZOLE
     Dosage: 30 MG, 1X/DAY
     Route: 048
  13. LANSOPRAZOLE [Concomitant]
     Active Substance: LANSOPRAZOLE
     Dosage: 15 MG
     Route: 048
  14. PANTOPRAZOLE [Concomitant]
     Active Substance: PANTOPRAZOLE
     Dosage: 40 MG, 1X/DAY
  15. CEFAZOLIN [Concomitant]
     Active Substance: CEFAZOLIN
     Dosage: 2 G
     Route: 042
  16. DOLIPRANE [Concomitant]
     Active Substance: ACETAMINOPHEN
     Dosage: 6 DF, 1X/DAY
     Dates: start: 20250130, end: 20250301
  17. ACETAMINOPHEN [Concomitant]
     Active Substance: ACETAMINOPHEN
     Dosage: UNK, AS NEEDED

REACTIONS (6)
  - Toxic skin eruption [Recovered/Resolved]
  - Implant site infection [Recovered/Resolved]
  - Device related infection [Recovered/Resolved]
  - Bacteraemia [Recovered/Resolved]
  - Pyrexia [Not Recovered/Not Resolved]
  - Sepsis [Not Recovered/Not Resolved]

NARRATIVE: CASE EVENT DATE: 20241024
